FAERS Safety Report 9736324 (Version 3)
Quarter: 2013Q4

REPORT INFORMATION
  Report Type: Report from Study
  Country: CA (occurrence: CA)
  Receive Date: 20131206
  Receipt Date: 20131226
  Transmission Date: 20140711
  Serious: Yes (Hospitalization)
  Sender: FDA-Public Use
  Company Number: CA-ABBVIE-11P-028-0726715-00

PATIENT
  Age: 63 Year
  Sex: Female
  Weight: 73 kg

DRUGS (5)
  1. HUMIRA [Suspect]
     Indication: PSORIASIS
     Route: 058
     Dates: start: 20080605, end: 20120110
  2. REMERON [Concomitant]
     Indication: DEPRESSION
     Dates: start: 201009
  3. CHAMPIX [Concomitant]
     Indication: EX-TOBACCO USER
     Route: 048
     Dates: start: 20100923, end: 20120415
  4. ROBAXACET [Concomitant]
     Indication: BACK PAIN
     Dates: start: 20091101, end: 20121015
  5. DEMEROL [Concomitant]
     Dates: start: 20080623

REACTIONS (1)
  - Ureteric cancer [Recovered/Resolved]
